FAERS Safety Report 4721961-7 (Version None)
Quarter: 2005Q3

REPORT INFORMATION
  Report Type: 
  Country: None (occurrence: None)
  Receive Date: 20050722
  Receipt Date: 20050714
  Transmission Date: 20060218
  Serious: Yes (Other)
  Sender: FDA-Public Use
  Company Number: PHNR2005AU01124

PATIENT
  Age: 60 Year
  Sex: Female

DRUGS (2)
  1. AREDIA [Suspect]
     Indication: PROPHYLAXIS
     Dosage: 90 MG, QMO
     Dates: start: 20000201, end: 20050101
  2. STEROIDS NOS [Concomitant]
     Dates: start: 20031201

REACTIONS (6)
  - ASEPTIC NECROSIS BONE [None]
  - BONE DISORDER [None]
  - JAW DISORDER [None]
  - OSTEOLYSIS [None]
  - OSTEONECROSIS [None]
  - TOOTH DISORDER [None]
